FAERS Safety Report 20020167 (Version 1)
Quarter: 2021Q4

REPORT INFORMATION
  Report Type: Spontaneous
  Country: JP (occurrence: JP)
  Receive Date: 20211101
  Receipt Date: 20211101
  Transmission Date: 20220303
  Serious: Yes (Other)
  Sender: FDA-Public Use
  Company Number: JP-Merck Healthcare KGaA-9273891

PATIENT
  Age: 90 Year
  Sex: Male

DRUGS (1)
  1. ERBITUX [Suspect]
     Active Substance: CETUXIMAB
     Indication: Rectal cancer metastatic
     Dosage: UNK UNK, UNKNOWN
     Route: 041

REACTIONS (3)
  - Malignant neoplasm progression [Unknown]
  - Device dislocation [Unknown]
  - Deep vein thrombosis [Unknown]
